FAERS Safety Report 16025496 (Version 2)
Quarter: 2019Q2

REPORT INFORMATION
  Report Type: Spontaneous
  Country: PL (occurrence: PL)
  Receive Date: 20190302
  Receipt Date: 20190412
  Transmission Date: 20190711
  Serious: Yes (Other)
  Sender: FDA-Public Use
  Company Number: PL-009507513-1902POL009842

PATIENT
  Age: 68 Year
  Sex: Female

DRUGS (13)
  1. MOLSIDOMINE [Concomitant]
     Active Substance: MOLSIDOMINE
     Dosage: 0.5 TABLET (1 MG) AT LUNCH AND 0.5 TABLET (1 MG) IN THE EVENING
     Route: 048
  2. PRENESSA [Concomitant]
     Active Substance: PERINDOPRIL
     Indication: HYPERTENSION
     Dosage: 0.5 TABLET (2 MG) IN THE MORNING AND EVENING
     Route: 048
  3. IPRES LONG [Concomitant]
     Indication: HYPERTENSION
     Dosage: 1 TABLET (1.5 UNITS NOT PROVIDED) IN THE MORNING
     Route: 048
  4. SINEMET CR [Suspect]
     Active Substance: CARBIDOPA\LEVODOPA
     Indication: PARKINSON^S DISEASE
     Dosage: 4 TABLETS (200/50 UNITS NOT PROVIDED) A DAY
     Route: 048
     Dates: start: 2015
  5. MADOPAR HBS [Concomitant]
     Active Substance: BENSERAZIDE HYDROCHLORIDE\LEVODOPA
     Indication: PARKINSON^S DISEASE
     Dosage: 1 TABLET (125/50) 4 TIMES A DAY
     Route: 048
  6. RASAGILINE. [Concomitant]
     Active Substance: RASAGILINE
     Indication: PARKINSON^S DISEASE
     Dosage: 1 TABLET A DAY IN THE MORNING
     Route: 048
  7. LEXOTAN [Concomitant]
     Active Substance: BROMAZEPAM
     Indication: AGITATION
     Dosage: 1 TABLET IN THE MORNING AND ? TABLET IN THE EVENING
     Route: 048
     Dates: start: 2004
  8. SINEMET CR [Suspect]
     Active Substance: CARBIDOPA\LEVODOPA
     Dosage: INCREASED TO 6 TABLETS (200/50 UNITS NOT PROVIDED) A DAY
     Route: 048
     Dates: start: 201803
  9. CONCOR [Concomitant]
     Active Substance: BISOPROLOL FUMARATE
     Indication: HYPERTENSION
     Dosage: 1 TABLET (3.75 UNITS NOT PROVIDED) IN THE MORNING
     Route: 048
  10. INSULIN [Concomitant]
     Active Substance: INSULIN NOS
     Indication: DIABETES MELLITUS
     Dosage: 2 TIMES A DAY
     Route: 048
  11. MADOPAR [Concomitant]
     Active Substance: BENSERAZIDE HYDROCHLORIDE\LEVODOPA
     Indication: PARKINSON^S DISEASE
     Dosage: 1 TABLET (250/50) 4 TIMES A DAY
     Route: 048
  12. KETREL (QUETIAPINE FUMARATE) [Concomitant]
     Active Substance: QUETIAPINE FUMARATE
     Dosage: 0.5 TABLET (12.5 MG) AT LUNCHTIME
  13. ZOCOR [Concomitant]
     Active Substance: SIMVASTATIN
     Dosage: 0.5 TABLET IN THE EVENING
     Route: 048

REACTIONS (14)
  - Diabetes mellitus inadequate control [Not Recovered/Not Resolved]
  - Sinus disorder [Unknown]
  - Incontinence [Unknown]
  - Abdominal pain [Unknown]
  - Dry mouth [Unknown]
  - Cataract [Not Recovered/Not Resolved]
  - Constipation [Unknown]
  - Product availability issue [Unknown]
  - Product dose omission [Unknown]
  - Headache [Unknown]
  - Parkinson^s disease [Unknown]
  - Bronchitis [Unknown]
  - Circumstance or information capable of leading to medication error [Unknown]
  - Staphylococcal infection [Unknown]

NARRATIVE: CASE EVENT DATE: 201803
